FAERS Safety Report 11258467 (Version 1)
Quarter: 2015Q3

REPORT INFORMATION
  Report Type: Spontaneous
  Country: US (occurrence: None)
  Receive Date: 20150709
  Receipt Date: 20150709
  Transmission Date: 20151125
  Serious: No
  Sender: FDA-Public Use
  Company Number: None

PATIENT
  Age: 49 Year
  Sex: Male
  Weight: 112.4 kg

DRUGS (1)
  1. VANCOMYCIN 5 GRAM MYLAN INSTITUTIONAL [Suspect]
     Active Substance: VANCOMYCIN
     Indication: WOUND
     Route: 042
     Dates: start: 20150313, end: 20150327

REACTIONS (5)
  - Nausea [None]
  - Musculoskeletal pain [None]
  - Body temperature increased [None]
  - Decreased appetite [None]
  - Back pain [None]

NARRATIVE: CASE EVENT DATE: 20150327
